FAERS Safety Report 4398226-9 (Version None)
Quarter: 2004Q3

REPORT INFORMATION
  Report Type: 
  Country: None (occurrence: None)
  Receive Date: 20040715
  Receipt Date: 20040705
  Transmission Date: 20050211
  Serious: Yes (Hospitalization)
  Sender: FDA-Public Use
  Company Number: 200412606FR

PATIENT
  Age: 85 Year
  Sex: Male

DRUGS (10)
  1. LASILIX FAIBLE [Suspect]
     Route: 048
  2. HEMIGOXINE NATIVELLE [Suspect]
     Indication: ARRHYTHMIA
     Route: 048
     Dates: start: 20030923, end: 20030922
  3. HEMIGOXINE NATIVELLE [Suspect]
     Indication: ATRIAL FIBRILLATION
     Route: 048
     Dates: start: 20030923, end: 20030922
  4. ASPIRIN [Suspect]
     Route: 048
  5. EXELON [Suspect]
     Route: 048
     Dates: start: 20030923, end: 20030922
  6. EBIXA [Suspect]
     Route: 048
  7. RENITEC [Suspect]
     Route: 048
  8. VASTAREL [Concomitant]
     Route: 048
  9. ALDACTONE [Concomitant]
     Route: 048
  10. ACETAMINOPHEN [Concomitant]

REACTIONS (3)
  - BLOOD UREA INCREASED [None]
  - BRADYCARDIA [None]
  - MALAISE [None]
